FAERS Safety Report 5061733-X (Version None)
Quarter: 2006Q3

REPORT INFORMATION
  Report Type: 
  Country: None (occurrence: None)
  Receive Date: 20060720
  Receipt Date: 20060707
  Transmission Date: 20061208
  Serious: Yes (Hospitalization, Congenital Anomaly, Other)
  Sender: FDA-Public Use
  Company Number: 2005093363

PATIENT
  Sex: Female
  Weight: 1.36 kg

DRUGS (4)
  1. DEPO-PROVERA [Suspect]
     Indication: CONTRACEPTION
     Dosage: SEE IMAGE
     Dates: start: 20020101, end: 20020101
  2. DEPO-PROVERA [Suspect]
     Indication: CONTRACEPTION
     Dosage: SEE IMAGE
     Dates: start: 20040812, end: 20040812
  3. NORLEVO (LEVONORGESTREL) [Concomitant]
  4. LOSEC (OMEPRAZOLE) [Concomitant]

REACTIONS (19)
  - BODY TEMPERATURE DECREASED [None]
  - CAESAREAN SECTION [None]
  - CONGENITAL ANOMALY [None]
  - CYANOSIS NEONATAL [None]
  - EPILEPSY [None]
  - FEVER NEONATAL [None]
  - FOETAL MALNUTRITION [None]
  - FONTANELLE DEPRESSED [None]
  - INFANTILE APNOEIC ATTACK [None]
  - MENTAL DISABILITY [None]
  - MICROCEPHALY [None]
  - MOTOR DYSFUNCTION [None]
  - PHYSICAL DISABILITY [None]
  - PREGNANCY WITH INJECTABLE CONTRACEPTIVE [None]
  - PREMATURE BABY [None]
  - PULMONARY VALVE STENOSIS [None]
  - RESPIRATORY DISORDER NEONATAL [None]
  - RESPIRATORY RATE DECREASED [None]
  - SMALL FOR DATES BABY [None]
